FAERS Safety Report 6198538-2 (Version None)
Quarter: 2009Q2

REPORT INFORMATION
  Report Type: 
  Country: None (occurrence: None)
  Receive Date: 20090521
  Receipt Date: 20090519
  Transmission Date: 20091009
  Serious: Yes (Death, Other)
  Sender: FDA-Public Use
  Company Number: PHHY2009ZA19287

PATIENT

DRUGS (1)
  1. ZOMETA [Suspect]

REACTIONS (3)
  - DEEP VEIN THROMBOSIS [None]
  - DISEASE PROGRESSION [None]
  - PULMONARY EMBOLISM [None]
